FAERS Safety Report 10250799 (Version 1)
Quarter: 2014Q2

REPORT INFORMATION
  Report Type: Spontaneous
  Country: JP (occurrence: JP)
  Receive Date: 20140620
  Receipt Date: 20140620
  Transmission Date: 20141212
  Serious: Yes (Hospitalization, Other)
  Sender: FDA-Public Use
  Company Number: JP-ROXANE LABORATORIES, INC.-2014-RO-00939RO

PATIENT
  Age: 69 Year
  Sex: Female

DRUGS (1)
  1. RISPERIDONE [Suspect]
     Indication: SCHIZOPHRENIA
     Dosage: 2 MG
     Route: 065

REACTIONS (3)
  - Pancreatitis acute [Recovered/Resolved]
  - Musculoskeletal stiffness [Unknown]
  - Cholelithiasis [Unknown]
